FAERS Safety Report 16107572 (Version 1)
Quarter: 2019Q1

REPORT INFORMATION
  Report Type: Spontaneous
  Country: US (occurrence: US)
  Receive Date: 20190322
  Receipt Date: 20190322
  Transmission Date: 20190418
  Serious: No
  Sender: FDA-Public Use
  Company Number: US-OMEROS CORPORATION-2018OME00005

PATIENT
  Age: 77 Year
  Sex: Male
  Weight: 59.41 kg

DRUGS (25)
  1. OMIDRIA [Suspect]
     Active Substance: KETOROLAC\PHENYLEPHRINE
     Indication: LENS EXTRACTION
     Dosage: ADDED TO BSS, ONCE
     Route: 047
     Dates: start: 20181003, end: 20181003
  2. BSS (ALCON) [Concomitant]
     Dosage: 500 ML
     Dates: start: 20181003, end: 20181003
  3. KETOROLAC [Concomitant]
     Active Substance: KETOROLAC\KETOROLAC TROMETHAMINE
     Dosage: UNK
     Dates: start: 20181003, end: 20181003
  4. PHENYLEPHRINE [Concomitant]
     Active Substance: PHENYLEPHRINE\PHENYLEPHRINE HYDROCHLORIDE
     Dosage: UNK
     Dates: start: 20181003, end: 20181003
  5. GENTAMICIN-PF (FRESENIUS KABI) [Concomitant]
     Dosage: 4 MG WITH BSS
     Dates: start: 20181003, end: 20181003
  6. VERSED [Concomitant]
     Active Substance: MIDAZOLAM HYDROCHLORIDE
     Dosage: UNK
     Dates: start: 20181003, end: 20181003
  7. LANTUS [Concomitant]
     Active Substance: INSULIN GLARGINE
  8. VITAMIN B12 [Concomitant]
     Active Substance: CYANOCOBALAMIN
     Dosage: UNK, 2X/WEEK
  9. LIDOCAINE. [Concomitant]
     Active Substance: LIDOCAINE
     Dosage: UNK
     Dates: start: 20181003, end: 20181003
  10. METFORMIN [Concomitant]
     Active Substance: METFORMIN HYDROCHLORIDE
  11. EPINEPHRINE-PF (BPI LABS) [Concomitant]
     Dosage: 0.3 ML WITH BSS
     Dates: start: 20181003, end: 20181003
  12. CYCLOPENTOLATE. [Concomitant]
     Active Substance: CYCLOPENTOLATE
     Dosage: UNK
     Dates: start: 20181003, end: 20181003
  13. TROPICAMIDE. [Concomitant]
     Active Substance: TROPICAMIDE
     Dosage: UNK
     Dates: start: 20181003, end: 20181003
  14. VIGAMOX [Concomitant]
     Active Substance: MOXIFLOXACIN HYDROCHLORIDE
     Dosage: UNK
     Dates: start: 20181003, end: 20181003
  15. TETRACAINE. [Concomitant]
     Active Substance: TETRACAINE
     Dosage: UNK
     Dates: start: 20181003, end: 20181003
  16. BETADINE [Concomitant]
     Active Substance: POVIDONE-IODINE
     Dosage: UNK
     Dates: start: 20181003, end: 20181003
  17. METOPROLOL. [Concomitant]
     Active Substance: METOPROLOL
  18. ATROPINE. [Concomitant]
     Active Substance: ATROPINE
     Dosage: UNK
     Dates: start: 20181003, end: 20181003
  19. FERROUS SULFATE. [Concomitant]
     Active Substance: FERROUS SULFATE
  20. MANNITOL. [Concomitant]
     Active Substance: MANNITOL
     Dosage: UNK
     Dates: start: 20181003, end: 20181003
  21. VYTORIN [Concomitant]
     Active Substance: EZETIMIBE\SIMVASTATIN
  22. ASA [Concomitant]
     Active Substance: ASPIRIN
  23. TETRAVISC [Concomitant]
     Active Substance: TETRACAINE HYDROCHLORIDE
     Dosage: UNK
     Dates: start: 20181003, end: 20181003
  24. GLIMEPIRIDE. [Concomitant]
     Active Substance: GLIMEPIRIDE
  25. UNSPECIFIED DUOVISC DEVICE (ALCON) [Concomitant]
     Dosage: UNK
     Route: 031
     Dates: start: 20181003, end: 20181003

REACTIONS (1)
  - Corneal oedema [Recovered/Resolved]

NARRATIVE: CASE EVENT DATE: 20181004
